FAERS Safety Report 21919927 (Version 1)
Quarter: 2023Q1

REPORT INFORMATION
  Report Type: Spontaneous
  Country: JP (occurrence: JP)
  Receive Date: 20230127
  Receipt Date: 20230127
  Transmission Date: 20230418
  Serious: Yes (Hospitalization, Other)
  Sender: FDA-Public Use
  Company Number: JP-PFIZER INC-PV202300014729

PATIENT
  Age: 47 Year
  Sex: Female

DRUGS (6)
  1. EPIRUBICIN HYDROCHLORIDE [Suspect]
     Active Substance: EPIRUBICIN HYDROCHLORIDE
     Indication: Adjuvant therapy
     Dosage: 4 CYCLES
  2. EPIRUBICIN HYDROCHLORIDE [Suspect]
     Active Substance: EPIRUBICIN HYDROCHLORIDE
     Indication: Mastectomy
  3. DOCETAXEL [Suspect]
     Active Substance: DOCETAXEL
     Indication: Adjuvant therapy
     Dosage: 4 CYCLES
  4. DOCETAXEL [Suspect]
     Active Substance: DOCETAXEL
     Indication: Mastectomy
  5. CYCLOPHOSPHAMIDE [Suspect]
     Active Substance: CYCLOPHOSPHAMIDE
     Indication: Adjuvant therapy
     Dosage: 4 CYCLES
  6. CYCLOPHOSPHAMIDE [Suspect]
     Active Substance: CYCLOPHOSPHAMIDE
     Indication: Mastectomy

REACTIONS (3)
  - Venoocclusive liver disease [Unknown]
  - Primary biliary cholangitis [Unknown]
  - Liver disorder [Unknown]
